FAERS Safety Report 6816290-1 (Version None)
Quarter: 2010Q2

REPORT INFORMATION
  Report Type: 
  Country: None (occurrence: None)
  Receive Date: 20100630
  Receipt Date: 20100517
  Transmission Date: 20101027
  Serious: Yes (Other)
  Sender: FDA-Public Use
  Company Number: AUR-APL-2010-01406

PATIENT
  Age: 52 Year
  Sex: Male

DRUGS (17)
  1. DIDANOSINE [Suspect]
  2. STAVUDINE [Suspect]
  3. ZIDOVUDINE [Suspect]
  4. ABACAVIR SULFATE [Suspect]
  5. DARUNAVIR [Suspect]
  6. DELAVIRDINE [Suspect]
  7. EFAVIRENZ [Suspect]
  8. ETRAVIRINE [Suspect]
  9. INDINAVIR [Suspect]
  10. LAMIVUDINE [Suspect]
  11. LIPINAVIR [Suspect]
  12. NELFINAVIR [Suspect]
  13. NEVIRAPINE [Suspect]
  14. RALTEGRAVIR [Suspect]
  15. RITONAVIR [Suspect]
  16. SAQUINAVIR [Suspect]
  17. TENOFOVIR [Suspect]

REACTIONS (5)
  - DIPLOPIA [None]
  - EYELID PTOSIS [None]
  - LIPODYSTROPHY ACQUIRED [None]
  - MITOCHONDRIAL TOXICITY [None]
  - PROGRESSIVE EXTERNAL OPHTHALMOPLEGIA [None]
